FAERS Safety Report 4875601-7 (Version None)
Quarter: 2005Q4

REPORT INFORMATION
  Report Type: 
  Country: None (occurrence: None)
  Receive Date: 20051205
  Receipt Date: 20050906
  Transmission Date: 20060501
  Serious: Yes (Hospitalization)
  Sender: FDA-Public Use
  Company Number: 2005-132196-NL

PATIENT
  Age: 27 Year
  Sex: Female
  Weight: 64 kg

DRUGS (1)
  1. NUVARING [Suspect]
     Indication: CONTRACEPTION
     Dosage: VAGINAL
     Route: 067
     Dates: start: 20031201, end: 20050806

REACTIONS (1)
  - PULMONARY EMBOLISM [None]
